FAERS Safety Report 6366746-3 (Version None)
Quarter: 2009Q3

REPORT INFORMATION
  Report Type: 
  Country: None (occurrence: None)
  Receive Date: 20090915
  Receipt Date: 20090908
  Transmission Date: 20100115
  Serious: Yes (Hospitalization)
  Sender: FDA-Public Use
  Company Number: 2009AL005885

PATIENT
  Age: 60 Year
  Sex: Female

DRUGS (1)
  1. DICLOFENAC SODIUM [Suspect]
     Indication: OSTEOARTHRITIS
     Dosage: 100 MG;QD

REACTIONS (4)
  - HAEMOGLOBIN DECREASED [None]
  - PAIN [None]
  - SPONTANEOUS HAEMATOMA [None]
  - WHITE BLOOD CELL COUNT INCREASED [None]
